FAERS Safety Report 4572536-4 (Version None)
Quarter: 2005Q1

REPORT INFORMATION
  Report Type: 
  Country: None (occurrence: None)
  Receive Date: 20050207
  Receipt Date: 20050131
  Transmission Date: 20050727
  Serious: Yes (Death, Other)
  Sender: FDA-Public Use
  Company Number: US-MERCK-0502USA00033

PATIENT
  Age: 44 Year
  Sex: Male

DRUGS (2)
  1. VIOXX [Suspect]
     Indication: SPINAL OSTEOARTHRITIS
     Route: 048
     Dates: start: 20010101, end: 20030125
  2. VIOXX [Suspect]
     Indication: BACK PAIN
     Route: 048
     Dates: start: 20010101, end: 20030125

REACTIONS (2)
  - DEATH [None]
  - MYOCARDIAL INFARCTION [None]
